FAERS Safety Report 18188147 (Version 1)
Quarter: 2020Q3

REPORT INFORMATION
  Report Type: Spontaneous
  Country: IN (occurrence: IN)
  Receive Date: 20200824
  Receipt Date: 20200824
  Transmission Date: 20201103
  Serious: Yes (Hospitalization, Other)
  Sender: FDA-Public Use
  Company Number: IN-AZURITY PHARMACEUTICALS, INC.-2020AZY00059

PATIENT
  Age: 28 Year
  Sex: Female

DRUGS (1)
  1. AMLODIPINE [Suspect]
     Active Substance: AMLODIPINE BESYLATE
     Dosage: 80 TABLETS OF 5 MG TABLETS, FOR A TOTAL DOSE OF 400 MG
     Route: 048

REACTIONS (6)
  - Intentional overdose [Recovered/Resolved]
  - Toxicity to various agents [Recovered/Resolved]
  - Hypotension [Recovered/Resolved]
  - Non-cardiogenic pulmonary oedema [Recovered/Resolved]
  - Ejection fraction decreased [Recovered/Resolved]
  - Ventricular hypokinesia [Recovered/Resolved]
